FAERS Safety Report 19826860 (Version 1)
Quarter: 2021Q3

REPORT INFORMATION
  Report Type: Report from Study
  Country: IN (occurrence: IN)
  Receive Date: 20210913
  Receipt Date: 20210913
  Transmission Date: 20211014
  Serious: Yes (Hospitalization)
  Sender: FDA-Public Use
  Company Number: IN-BRISTOL-MYERS SQUIBB COMPANY-BMS-2021-090435

PATIENT
  Age: 68 Year
  Sex: Male
  Weight: 58.2 kg

DRUGS (1)
  1. NIVOLUMAB [Suspect]
     Active Substance: NIVOLUMAB
     Indication: HEPATOCELLULAR CARCINOMA
     Dosage: 175 MILLIGRAM, Q2WK
     Route: 042
     Dates: start: 20210708

REACTIONS (2)
  - Chills [Recovering/Resolving]
  - Back pain [Recovering/Resolving]
